FAERS Safety Report 8224375-0 (Version None)
Quarter: 2012Q1

REPORT INFORMATION
  Report Type: 
  Country: None (occurrence: None)
  Receive Date: 20120321
  Receipt Date: 20120315
  Transmission Date: 20120608
  Serious: No
  Sender: FDA-Public Use
  Company Number: JP-PFIZER INC-2012003809

PATIENT
  Age: 81 Year
  Sex: Female

DRUGS (3)
  1. TOLTERODINE TARTRATE [Suspect]
     Indication: HYPERTONIC BLADDER
     Dosage: 4 MG, 1X/DAY
     Route: 048
     Dates: start: 20111208, end: 20111215
  2. VESICARE [Concomitant]
     Indication: HYPERTONIC BLADDER
     Dosage: 10 MG, 1X/DAY
     Route: 048
     Dates: start: 20101125, end: 20120105
  3. ARICEPT [Concomitant]
     Dosage: 5 MG, 1X/DAY
     Route: 048
     Dates: start: 20110101

REACTIONS (1)
  - TREMOR [None]
